FAERS Safety Report 19045220 (Version 1)
Quarter: 2021Q1

REPORT INFORMATION
  Report Type: Spontaneous
  Country: ES (occurrence: ES)
  Receive Date: 20210322
  Receipt Date: 20210322
  Transmission Date: 20210420
  Serious: Yes (Other)
  Sender: FDA-Public Use
  Company Number: NVSC2021ES054590

PATIENT
  Age: 31 Year
  Sex: Female

DRUGS (1)
  1. PIPERACILINA + TAZOBACTAM SANDOZ [Suspect]
     Active Substance: PIPERACILLIN SODIUM\TAZOBACTAM SODIUM
     Indication: INFECTION
     Dosage: 4 G, Q8H (4 G/0,5 G POLVO PARA SOLUCION PARA PERFUSION EFG , 50 VIALES DE 50 ML)
     Route: 042
     Dates: start: 20210204, end: 20210211

REACTIONS (4)
  - Gamma-glutamyltransferase abnormal [Recovering/Resolving]
  - Blood alkaline phosphatase increased [Recovering/Resolving]
  - Hypertransaminasaemia [Recovering/Resolving]
  - Hyperbilirubinaemia [Recovering/Resolving]

NARRATIVE: CASE EVENT DATE: 20210208
